FAERS Safety Report 16045821 (Version 1)
Quarter: 2019Q1

REPORT INFORMATION
  Report Type: Spontaneous
  Country: US (occurrence: US)
  Receive Date: 20190307
  Receipt Date: 20190307
  Transmission Date: 20190418
  Serious: No
  Sender: FDA-Public Use
  Company Number: US-009507513-1902USA011098

PATIENT
  Age: 16 Year
  Sex: Female

DRUGS (1)
  1. NEXPLANON [Suspect]
     Active Substance: ETONOGESTREL
     Indication: CONTRACEPTION
     Dosage: IMPLANT LEFT UPPER ARM
     Route: 059
     Dates: start: 201807

REACTIONS (6)
  - Nausea [Unknown]
  - Vomiting [Unknown]
  - Implant site pain [Unknown]
  - Pain in extremity [Unknown]
  - Implant site reaction [Unknown]
  - Dizziness [Unknown]

NARRATIVE: CASE EVENT DATE: 20190223
